FAERS Safety Report 5588735-9 (Version None)
Quarter: 2008Q1

REPORT INFORMATION
  Report Type: 
  Country: None (occurrence: None)
  Receive Date: 20080111
  Receipt Date: 20080103
  Transmission Date: 20080703
  Serious: Yes (Other)
  Sender: FDA-Public Use
  Company Number: B0360565A

PATIENT
  Sex: Female

DRUGS (2)
  1. PAROXETINE HYDROCHLORIDE [Suspect]
     Route: 065
     Dates: start: 19941110
  2. PYRIDOXINE HYDROCHLORIDE [Concomitant]
     Dates: start: 19980827

REACTIONS (13)
  - AGGRESSION [None]
  - ANGER [None]
  - ANXIETY [None]
  - APATHY [None]
  - ASTHENIA [None]
  - BACK PAIN [None]
  - DIARRHOEA [None]
  - MEMORY IMPAIRMENT [None]
  - MYALGIA [None]
  - NAUSEA [None]
  - NECK PAIN [None]
  - WEIGHT FLUCTUATION [None]
  - WITHDRAWAL SYNDROME [None]
